FAERS Safety Report 9503648 (Version 1)
Quarter: 2013Q3

REPORT INFORMATION
  Report Type: Spontaneous
  Country: US (occurrence: None)
  Receive Date: 20130905
  Receipt Date: 20130905
  Transmission Date: 20140515
  Serious: Yes (Life-Threatening, Hospitalization)
  Sender: FDA-Public Use
  Company Number: None

PATIENT
  Age: 33 Year
  Sex: Female
  Weight: 52.16 kg

DRUGS (2)
  1. ABILIFY [Suspect]
     Indication: ANXIETY
     Route: 048
  2. ABILIFY [Suspect]
     Indication: DEPRESSION
     Route: 048

REACTIONS (11)
  - Tremor [None]
  - Personality change [None]
  - Overdose [None]
  - Vomiting [None]
  - Confusional state [None]
  - Asthenia [None]
  - Convulsion [None]
  - Staring [None]
  - Gait disturbance [None]
  - Feeling abnormal [None]
  - Anxiety [None]
